FAERS Safety Report 12203177 (Version 1)
Quarter: 2016Q1

REPORT INFORMATION
  Report Type: Spontaneous
  Country: US (occurrence: None)
  Receive Date: 20160321
  Receipt Date: 20160321
  Transmission Date: 20160526
  Serious: Yes (Other)
  Sender: FDA-Public Use
  Company Number: None

PATIENT
  Age: 51 Year
  Sex: Female
  Weight: 69 kg

DRUGS (7)
  1. PALIPERIDONE [Concomitant]
     Active Substance: PALIPERIDONE
  2. OLANZAPINE. [Concomitant]
     Active Substance: OLANZAPINE
  3. TEGRETOL [Suspect]
     Active Substance: CARBAMAZEPINE
     Indication: BIPOLAR DISORDER
     Route: 048
  4. MEMANTINE. [Concomitant]
     Active Substance: MEMANTINE
  5. VITAMIN D [Concomitant]
     Active Substance: CHOLECALCIFEROL
  6. LITHIUM. [Concomitant]
     Active Substance: LITHIUM
  7. MELATONIN [Concomitant]
     Active Substance: MELATONIN

REACTIONS (6)
  - Asterixis [None]
  - Blood prolactin increased [None]
  - Drug level increased [None]
  - Abnormal behaviour [None]
  - Ataxia [None]
  - Speech disorder [None]

NARRATIVE: CASE EVENT DATE: 20160316
